FAERS Safety Report 7380368-7 (Version None)
Quarter: 2011Q1

REPORT INFORMATION
  Report Type: 
  Country: None (occurrence: None)
  Receive Date: 20110329
  Receipt Date: 20110314
  Transmission Date: 20110831
  Serious: No
  Sender: FDA-Public Use
  Company Number: DE-JNJFOC-20110107687

PATIENT
  Sex: Female

DRUGS (5)
  1. TRAMADOL HYDROCHLORIDE [Concomitant]
     Indication: NEURALGIA
     Route: 065
  2. PALEXIA RETARD [Suspect]
     Indication: PRODUCT USED FOR UNKNOWN INDICATION
     Dosage: 50 MG TWICE A DAY/1-0-1
     Route: 048
  3. TRAMADOL HYDROCHLORIDE [Concomitant]
     Indication: BONE PAIN
     Route: 065
  4. DICLOFENAC [Concomitant]
     Indication: NEURALGIA
     Dosage: TWICE A DAY
     Route: 065
  5. DICLOFENAC [Concomitant]
     Indication: BONE PAIN
     Dosage: TWICE A DAY
     Route: 065

REACTIONS (3)
  - HALLUCINATION [None]
  - SOMNOLENCE [None]
  - RESTLESSNESS [None]
